FAERS Safety Report 21977313 (Version 1)
Quarter: 2023Q1

REPORT INFORMATION
  Report Type: Spontaneous
  Country: US (occurrence: None)
  Receive Date: 20230210
  Receipt Date: 20230210
  Transmission Date: 20230418
  Serious: No
  Sender: FDA-Public Use
  Company Number: 2023A010604

PATIENT
  Age: 73 Year
  Sex: Female
  Weight: 56.7 kg

DRUGS (14)
  1. SYMBICORT [Suspect]
     Active Substance: BUDESONIDE\FORMOTEROL FUMARATE DIHYDRATE
     Indication: Cough
     Dosage: 160/4.5 IS THE AMOUNT OF THE AEROSOL
     Route: 055
  2. SYMBICORT [Suspect]
     Active Substance: BUDESONIDE\FORMOTEROL FUMARATE DIHYDRATE
     Indication: Bronchospasm
     Dosage: 160/4.5 IS THE AMOUNT OF THE AEROSOL
     Route: 055
  3. PAXLOVID [Suspect]
     Active Substance: NIRMATRELVIR\RITONAVIR
     Indication: COVID-19
     Dosage: 300MG 100MG DOSE PACK, 6 PER PACKET, 3 FOR AM AND THREE FOR PM BY MOUTH.
     Route: 048
  4. COPAXONE [Concomitant]
     Active Substance: GLATIRAMER ACETATE
     Indication: Multiple sclerosis
     Dosage: 40MG VIA INJECTION THREE TIMES A WEEK.
  5. SIMVASTATIN [Concomitant]
     Active Substance: SIMVASTATIN
     Indication: Blood cholesterol
  6. TRAZODONE [Concomitant]
     Active Substance: TRAZODONE HYDROCHLORIDE
     Indication: Antidepressant therapy
  7. VENLAFAXINE HCL [Concomitant]
     Active Substance: VENLAFAXINE HYDROCHLORIDE
     Indication: Anxiety
  8. MONTELUKAST SODIUM [Concomitant]
     Active Substance: MONTELUKAST SODIUM
  9. DIAZEPAM [Concomitant]
     Active Substance: DIAZEPAM
     Dosage: 4MG AT NIGHT AND 1MG IN THE MORNING
  10. FLONASE [Concomitant]
     Active Substance: FLUTICASONE PROPIONATE
  11. CALCIUM CHEWS [Concomitant]
  12. VITAMIN E [Concomitant]
     Active Substance: .ALPHA.-TOCOPHEROL
  13. VITAMIN D3 [Concomitant]
     Active Substance: CHOLECALCIFEROL
  14. VITAMIN B12 [Concomitant]
     Active Substance: CYANOCOBALAMIN
     Indication: Pernicious anaemia
     Dosage: VIA INJECTION

REACTIONS (9)
  - Diarrhoea [Unknown]
  - Decreased appetite [Unknown]
  - Pyrexia [Not Recovered/Not Resolved]
  - Dysphagia [Unknown]
  - Malaise [Unknown]
  - Thinking abnormal [Unknown]
  - COVID-19 [Unknown]
  - Cough [Unknown]
  - Oropharyngeal pain [Unknown]
